FAERS Safety Report 8581648-X (Version None)
Quarter: 2012Q3

REPORT INFORMATION
  Report Type: 
  Country: None (occurrence: None)
  Receive Date: 20120809
  Receipt Date: 20120731
  Transmission Date: 20120928
  Serious: Yes (Other)
  Sender: FDA-Public Use
  Company Number: JP-ASTRAZENECA-2012SE53489

PATIENT
  Age: 44 Year
  Sex: Female
  Weight: 72 kg

DRUGS (6)
  1. MUCODYNE [Concomitant]
     Indication: ASTHMA
     Route: 048
  2. MEPTIN AIR [Concomitant]
     Indication: ASTHMA
     Dosage: DOSE UNKNOWN
     Route: 055
  3. CELEBREX [Concomitant]
     Route: 048
  4. ZOLADEX [Suspect]
     Indication: ENDOMETRIOSIS
     Route: 058
  5. MONTELUKAST SODIUM [Concomitant]
     Indication: ASTHMA
     Route: 048
  6. ADVAIR DISKUS 100/50 [Concomitant]
     Indication: ASTHMA
     Dosage: DOSE UNKNOWN
     Route: 055

REACTIONS (1)
  - POSTERIOR REVERSIBLE ENCEPHALOPATHY SYNDROME [None]
